FAERS Safety Report 9457765 (Version 1)
Quarter: 2013Q3

REPORT INFORMATION
  Report Type: Spontaneous
  Country: US (occurrence: None)
  Receive Date: 20130812
  Receipt Date: 20130812
  Transmission Date: 20140515
  Serious: Yes (Other)
  Sender: FDA-Public Use
  Company Number: None

PATIENT
  Age: 37 Year
  Sex: Male
  Weight: 106.6 kg

DRUGS (2)
  1. ACTIVITMETABOLISM FORMULA BEACHBODY, LLC [Suspect]
     Indication: WEIGHT DECREASED
     Dosage: 2 TABLETS ORALY
     Route: 048
     Dates: start: 20130701, end: 20130725
  2. HYDROXYCUT [Concomitant]

REACTIONS (2)
  - Vomiting [None]
  - Vascular injury [None]
